FAERS Safety Report 6829309-9 (Version None)
Quarter: 2010Q3

REPORT INFORMATION
  Report Type: 
  Country: None (occurrence: None)
  Receive Date: 20100709
  Receipt Date: 20070302
  Transmission Date: 20110219
  Serious: No
  Sender: FDA-Public Use
  Company Number: US-PFIZER INC-2007006046

PATIENT
  Sex: Female
  Weight: 78.93 kg

DRUGS (8)
  1. CHANTIX [Suspect]
     Indication: SMOKING CESSATION THERAPY
     Route: 048
     Dates: start: 20070118
  2. PROLIXIN [Concomitant]
  3. CLONOPIN [Concomitant]
  4. PROZAC [Concomitant]
  5. ZANAFLEX [Concomitant]
  6. RELAFEN [Concomitant]
  7. ZYRTEC [Concomitant]
  8. ALL OTHER THERAPEUTIC PRODUCTS [Concomitant]

REACTIONS (1)
  - DRUG INEFFECTIVE [None]
